FAERS Safety Report 8516733-1 (Version None)
Quarter: 2012Q3

REPORT INFORMATION
  Report Type: 
  Country: None (occurrence: None)
  Receive Date: 20120718
  Receipt Date: 20120703
  Transmission Date: 20120928
  Serious: Yes (Hospitalization, Disabling)
  Sender: FDA-Public Use
  Company Number: JP-AMGEN-JPNCT2012043381

PATIENT
  Age: 59 Year
  Sex: Female
  Weight: 41 kg

DRUGS (8)
  1. LASIX [Concomitant]
     Indication: NEPHROSCLEROSIS
     Dosage: UNCERTAINTY
     Route: 048
  2. CRESTOR [Concomitant]
     Dosage: UNCERTAINTY
     Route: 048
  3. CALBLOCK [Concomitant]
     Dosage: UNCERTAINTY
     Route: 048
  4. DIOVAN [Concomitant]
     Dosage: UNCERTAINTY
     Route: 048
  5. ALLOPURINOL [Concomitant]
     Dosage: UNCERTAINTY
     Route: 048
  6. KREMEZIN [Concomitant]
     Indication: NEPHROSCLEROSIS
     Dosage: UNCERTAINTY
     Route: 048
  7. DARBEPOETIN ALFA - KHK [Suspect]
     Indication: NEPHROGENIC ANAEMIA
     Dosage: 60 MUG, QD
     Route: 040
     Dates: start: 20110523, end: 20110523
  8. ZOLPIDEM [Concomitant]
     Dosage: UNCERTAINTY
     Route: 048

REACTIONS (2)
  - CEREBRAL HAEMORRHAGE [None]
  - APALLIC SYNDROME [None]
